FAERS Safety Report 8373199-2 (Version None)
Quarter: 2012Q2

REPORT INFORMATION
  Report Type: 
  Country: None (occurrence: None)
  Receive Date: 20120521
  Receipt Date: 20120518
  Transmission Date: 20120825
  Serious: Yes (Death)
  Sender: FDA-Public Use
  Company Number: PH-PFIZER INC-2012089936

PATIENT
  Age: 81 Year
  Sex: Male

DRUGS (3)
  1. NORVASC [Suspect]
     Indication: HYPERTENSION
     Dosage: 5 MG, 1X/DAY
  2. METOPROLOL [Concomitant]
  3. METOPROLOL TARTRATE [Concomitant]

REACTIONS (1)
  - MYOCARDIAL INFARCTION [None]
